FAERS Safety Report 8004747-X (Version None)
Quarter: 2011Q4

REPORT INFORMATION
  Report Type: 
  Country: None (occurrence: None)
  Receive Date: 20111223
  Receipt Date: 20111214
  Transmission Date: 20120403
  Serious: No
  Sender: FDA-Public Use
  Company Number: US-JNJFOC-20111103952

PATIENT
  Sex: Male
  Weight: 90.27 kg

DRUGS (1)
  1. INVEGA SUSTENNA [Suspect]
     Indication: SCHIZOPHRENIA
     Route: 030
     Dates: start: 20111001, end: 20111001

REACTIONS (2)
  - INJECTION SITE HYPERSENSITIVITY [None]
  - INJECTION SITE PAIN [None]
